FAERS Safety Report 5529961-4 (Version None)
Quarter: 2007Q4

REPORT INFORMATION
  Report Type: 
  Country: None (occurrence: None)
  Receive Date: 20071129
  Receipt Date: 20071122
  Transmission Date: 20080405
  Serious: Yes (Hospitalization, Congenital Anomaly, Other)
  Sender: FDA-Public Use
  Company Number: FR-MERCK-0711FRA00079

PATIENT
  Age: 25 Year
  Sex: Female

DRUGS (2)
  1. NOROXIN [Suspect]
     Indication: PYELONEPHRITIS
     Route: 048
     Dates: start: 20060616, end: 20060707
  2. AMOXICILLIN [Suspect]
     Indication: PYELONEPHRITIS
     Route: 048
     Dates: start: 20070616, end: 20070707

REACTIONS (3)
  - ABORTION INDUCED [None]
  - DRUG EXPOSURE DURING PREGNANCY [None]
  - SPINA BIFIDA [None]
